FAERS Safety Report 9516410 (Version 2)
Quarter: 2013Q3

REPORT INFORMATION
  Report Type: Report from Study
  Country: US (occurrence: US)
  Receive Date: 20130911
  Receipt Date: 20130917
  Transmission Date: 20140515
  Serious: Yes (Death, Hospitalization, Other)
  Sender: FDA-Public Use
  Company Number: US-ACTELION-A-NJ2013-88106

PATIENT
  Age: 49 Year
  Sex: Female

DRUGS (3)
  1. VELETRI [Suspect]
     Indication: PULMONARY ARTERIAL HYPERTENSION
     Dosage: 60 NG/KG, PER MIN
     Route: 042
     Dates: start: 20101021, end: 201309
  2. TRACLEER [Suspect]
     Indication: PULMONARY ARTERIAL HYPERTENSION
     Dosage: UNK
     Route: 048
  3. SILDENAFIL [Concomitant]

REACTIONS (8)
  - Death [Fatal]
  - Transfusion [Unknown]
  - Agitation [Unknown]
  - Oedema peripheral [Unknown]
  - Arthralgia [Unknown]
  - Intentional medical device removal by patient [Recovered/Resolved]
  - Dizziness [Unknown]
  - Heart rate increased [Unknown]
